FAERS Safety Report 9440688 (Version 1)
Quarter: 2013Q3

REPORT INFORMATION
  Report Type: Spontaneous
  Country: CN (occurrence: CN)
  Receive Date: 20130805
  Receipt Date: 20130805
  Transmission Date: 20140515
  Serious: Yes (Other)
  Sender: FDA-Public Use
  Company Number: CN-PFIZER INC-2013220295

PATIENT
  Age: 55 Year
  Sex: Female

DRUGS (3)
  1. PHARMORUBICIN [Suspect]
     Indication: BREAST CANCER
     Dosage: 130 MG, 1X/DAY
     Route: 042
     Dates: start: 20120623, end: 20120623
  2. CYCLOPHOSPHAMIDE [Concomitant]
     Dosage: 800 MG, UNK
     Dates: start: 20120623
  3. FLUOROURACIL [Concomitant]
     Dosage: 750 MG, UNK
     Dates: start: 20120623

REACTIONS (1)
  - Liver function test abnormal [Recovering/Resolving]
